FAERS Safety Report 10349656 (Version 1)
Quarter: 2014Q3

REPORT INFORMATION
  Report Type: Spontaneous
  Country: AU (occurrence: AU)
  Receive Date: 20140730
  Receipt Date: 20140730
  Transmission Date: 20150326
  Serious: Yes (Other)
  Sender: FDA-Public Use
  Company Number: AU-JNJFOC-20140718176

PATIENT

DRUGS (2)
  1. XARELTO [Suspect]
     Active Substance: RIVAROXABAN
     Indication: PRODUCT USED FOR UNKNOWN INDICATION
     Route: 048
  2. CLEXANE [Concomitant]
     Active Substance: ENOXAPARIN SODIUM
     Route: 065

REACTIONS (2)
  - Liver function test abnormal [Recovered/Resolved]
  - Hepatitis acute [Recovered/Resolved]
